FAERS Safety Report 10473977 (Version 1)
Quarter: 2014Q3

REPORT INFORMATION
  Report Type: Spontaneous
  Country: US (occurrence: US)
  Receive Date: 20140924
  Receipt Date: 20140924
  Transmission Date: 20150326
  Serious: Yes (Hospitalization)
  Sender: FDA-Public Use
  Company Number: US-INCYTE CORPORATION-2014IN002631

PATIENT
  Age: 75 Year
  Sex: Female

DRUGS (13)
  1. COQ10                              /00517201/ [Concomitant]
     Dosage: UNK
  2. LASIX [Concomitant]
     Active Substance: FUROSEMIDE
     Dosage: UNK
  3. MAGNESIUM [Concomitant]
     Active Substance: MAGNESIUM
     Dosage: UNK
  4. CALCITONIN [Concomitant]
     Active Substance: CALCITONIN
     Dosage: UNK
  5. COUMADIN [Concomitant]
     Active Substance: WARFARIN SODIUM
     Dosage: UNK
  6. ZEMPLAR [Concomitant]
     Active Substance: PARICALCITOL
     Dosage: UNK
  7. IRON [Concomitant]
     Active Substance: IRON
     Dosage: UNK
  8. VITAMIN D3 [Concomitant]
     Active Substance: CHOLECALCIFEROL
     Dosage: UNK
  9. PAXIL [Concomitant]
     Active Substance: PAROXETINE HYDROCHLORIDE
     Dosage: UNK
  10. LIPITOR [Concomitant]
     Active Substance: ATORVASTATIN CALCIUM
     Dosage: UNK
  11. JAKAFI [Suspect]
     Active Substance: RUXOLITINIB
     Indication: MYELOFIBROSIS
     Dosage: 10 MG, BID
     Route: 048
  12. ASPIRIN. [Concomitant]
     Active Substance: ASPIRIN
     Dosage: 81 MG, UNK
  13. OMEGA-3                            /01866101/ [Concomitant]
     Dosage: UNK

REACTIONS (1)
  - Fall [Unknown]

NARRATIVE: CASE EVENT DATE: 20140915
